FAERS Safety Report 5381384-7 (Version None)
Quarter: 2007Q3

REPORT INFORMATION
  Report Type: 
  Country: None (occurrence: None)
  Receive Date: 20070709
  Receipt Date: 20070627
  Transmission Date: 20080115
  Serious: Yes (Other)
  Sender: FDA-Public Use
  Company Number: US-KINGPHARMUSA00001-K200700824

PATIENT

DRUGS (9)
  1. ALTACE [Suspect]
     Indication: HYPERTENSION
     Dosage: UNK, QD
     Route: 048
     Dates: end: 20070528
  2. AZD0837 INVESTIGATIONAL DRUG [Suspect]
     Indication: THROMBOSIS PROPHYLAXIS
     Dates: start: 20070417
  3. TERTENSIF [Concomitant]
     Indication: HYPERTENSION
     Route: 048
  4. SINTROM [Concomitant]
     Indication: ATRIAL FIBRILLATION
     Route: 048
     Dates: end: 20070412
  5. ATORIS                             /01326101/ [Concomitant]
     Indication: HYPERLIPIDAEMIA
     Route: 048
  6. METOCARD [Concomitant]
     Indication: ATRIAL FIBRILLATION
     Route: 048
     Dates: end: 20070611
  7. DIGOXIN [Concomitant]
     Indication: ATRIAL FIBRILLATION
     Route: 048
  8. INHIBACE                           /00845401/ [Concomitant]
     Indication: HYPERTENSION
     Route: 048
     Dates: start: 20070528
  9. KAIDYUM [Concomitant]
     Indication: POLYURIA

REACTIONS (2)
  - CONDITION AGGRAVATED [None]
  - HYPERTENSION [None]
